FAERS Safety Report 6171276-8 (Version None)
Quarter: 2009Q2

REPORT INFORMATION
  Report Type: 
  Country: None (occurrence: None)
  Receive Date: 20090428
  Receipt Date: 20090428
  Transmission Date: 20091009
  Serious: Yes (Hospitalization)
  Sender: FDA-Public Use
  Company Number: None

PATIENT
  Age: 57 Year
  Sex: Female

DRUGS (16)
  1. IMURAN [Suspect]
     Indication: CROHN'S DISEASE
  2. CELEBREX [Concomitant]
  3. CRESTOR [Concomitant]
  4. ESTRADIOL [Concomitant]
  5. EVOXAC [Concomitant]
  6. LOTREL [Concomitant]
  7. TOPROL-XL [Concomitant]
  8. METROGEL [Concomitant]
  9. NASONEX [Concomitant]
  10. NEXIUM [Concomitant]
  11. PENTASA [Concomitant]
  12. SYNTHROID [Concomitant]
  13. TOPAMAX [Concomitant]
  14. TRICOR [Concomitant]
  15. VESICARE [Concomitant]
  16. ZOVIRAX [Concomitant]

REACTIONS (2)
  - ABDOMINAL PAIN [None]
  - HEPATIC ENZYME INCREASED [None]
